FAERS Safety Report 13059816 (Version 11)
Quarter: 2018Q2

REPORT INFORMATION
  Report Type: Report from Study
  Country: FR (occurrence: FR)
  Receive Date: 20161223
  Receipt Date: 20180417
  Transmission Date: 20180711
  Serious: Yes (Death, Hospitalization, Other)
  Sender: FDA-Public Use
  Company Number: FR-INCYTE CORPORATION-2016IN008176

PATIENT

DRUGS (5)
  1. JAKAVI [Suspect]
     Active Substance: RUXOLITINIB
     Dosage: 25 MG, BID (2 DF DAILY)
     Route: 048
     Dates: start: 20141105, end: 20151204
  2. JAKAVI [Suspect]
     Active Substance: RUXOLITINIB
     Dosage: 25 MG, BID
     Route: 048
     Dates: start: 20151211, end: 20160902
  3. ACEBUTOLOL [Concomitant]
     Active Substance: ACEBUTOLOL
     Indication: ATRIAL FIBRILLATION
     Dosage: 100 MG, BID
     Route: 048
  4. JAKAVI [Suspect]
     Active Substance: RUXOLITINIB
     Dosage: 20 MG, BID (2 DF DAILY)
     Route: 048
     Dates: start: 20141008, end: 20141104
  5. JAKAVI [Suspect]
     Active Substance: RUXOLITINIB
     Indication: PRIMARY MYELOFIBROSIS
     Dosage: 15 MG, BID (2 DF DAILY)
     Route: 048
     Dates: start: 20140917, end: 20141007

REACTIONS (18)
  - Urosepsis [Recovered/Resolved]
  - Escherichia sepsis [Recovered/Resolved]
  - General physical condition abnormal [Not Recovered/Not Resolved]
  - Hypokalaemia [Recovered/Resolved]
  - Acute kidney injury [Recovered/Resolved]
  - Spinal compression fracture [Not Recovered/Not Resolved]
  - Hepatic steatosis [Unknown]
  - Laryngitis [Unknown]
  - Back pain [Not Recovered/Not Resolved]
  - Urinary tract infection [Not Recovered/Not Resolved]
  - Non-alcoholic steatohepatitis [Not Recovered/Not Resolved]
  - Osteoporosis [Not Recovered/Not Resolved]
  - Rash [Recovered/Resolved]
  - Splenomegaly [Unknown]
  - Acute myeloid leukaemia [Fatal]
  - Abdominal pain [Unknown]
  - Sepsis [Recovered/Resolved]
  - Cardiac failure [Recovered/Resolved]

NARRATIVE: CASE EVENT DATE: 20150821
